FAERS Safety Report 9206201 (Version 2)
Quarter: 2013Q2

REPORT INFORMATION
  Report Type: Spontaneous
  Country: US (occurrence: US)
  Receive Date: 20130403
  Receipt Date: 20130510
  Transmission Date: 20140414
  Serious: No
  Sender: FDA-Public Use
  Company Number: US-PFIZER INC-2013100927

PATIENT
  Sex: Female

DRUGS (4)
  1. ADVIL PM [Suspect]
     Indication: SLEEP DISORDER
     Dosage: 2 TABLETS, ONCE A DAY
     Route: 048
     Dates: start: 201303
  2. CADUET [Concomitant]
     Dosage: UNK, ONCE A DAY
  3. EVISTA [Concomitant]
     Dosage: UNK, ONCE A DAY
  4. VESICARE [Concomitant]
     Dosage: 10 MG, ONCE A DAY

REACTIONS (2)
  - Drug ineffective [Unknown]
  - Product label issue [Unknown]
